FAERS Safety Report 4966918-6 (Version None)
Quarter: 2006Q2

REPORT INFORMATION
  Report Type: 
  Country: None (occurrence: None)
  Receive Date: 20060407
  Receipt Date: 20050428
  Transmission Date: 20061013
  Serious: Yes (Other)
  Sender: FDA-Public Use
  Company Number: US-MERCK-0505USA00170

PATIENT
  Age: 50 Year
  Sex: Male
  Weight: 80 kg

DRUGS (2)
  1. VIOXX [Suspect]
     Indication: ARTHRALGIA
     Route: 048
     Dates: start: 20020101, end: 20040301
  2. VIOXX [Suspect]
     Route: 048
     Dates: start: 20020101, end: 20040301

REACTIONS (4)
  - ANGINA PECTORIS [None]
  - ARTHROPATHY [None]
  - CEREBROVASCULAR ACCIDENT [None]
  - TRANSIENT ISCHAEMIC ATTACK [None]
